FAERS Safety Report 17966681 (Version 1)
Quarter: 2020Q2

REPORT INFORMATION
  Report Type: Report from Study
  Country: CO (occurrence: CO)
  Receive Date: 20200630
  Receipt Date: 20200630
  Transmission Date: 20200714
  Serious: Yes (Hospitalization, Other)
  Sender: FDA-Public Use
  Company Number: CO-ROCHE-2631867

PATIENT
  Age: 35 Year
  Sex: Female
  Weight: 52 kg

DRUGS (5)
  1. HYDROMORPHONE [Concomitant]
     Active Substance: HYDROMORPHONE
  2. METHADONE [Concomitant]
     Active Substance: METHADONE HYDROCHLORIDE
     Route: 042
  3. ACETAMINOPHEN. [Concomitant]
     Active Substance: ACETAMINOPHEN
     Indication: PAIN
     Dosage: DOSE UNKNOWN
     Route: 065
  4. MORPHINE [Concomitant]
     Active Substance: MORPHINE
  5. AVASTIN [Suspect]
     Active Substance: BEVACIZUMAB
     Indication: CERVIX CARCINOMA
     Dosage: DOSE UNKNOWN
     Route: 042
     Dates: start: 20180916

REACTIONS (4)
  - Anaemia [Recovering/Resolving]
  - Fistula [Recovered/Resolved with Sequelae]
  - Urinary tract infection [Recovering/Resolving]
  - Platelet count decreased [Recovering/Resolving]

NARRATIVE: CASE EVENT DATE: 20200602
